FAERS Safety Report 10009833 (Version 2)
Quarter: 2014Q1

REPORT INFORMATION
  Report Type: Spontaneous
  Country: US (occurrence: US)
  Receive Date: 20140312
  Receipt Date: 20140312
  Transmission Date: 20141002
  Serious: No
  Sender: FDA-Public Use
  Company Number: US-INCYTE CORPORATION-2012IN002676

PATIENT
  Age: 71 Year
  Sex: Male

DRUGS (7)
  1. JAKAFI [Suspect]
     Indication: MYELOFIBROSIS
     Dosage: 20 MG, BID
     Route: 048
     Dates: start: 201209
  2. LEVOTHYROXINE [Concomitant]
  3. NAMENDA [Concomitant]
  4. PANTOPRAZOLE [Concomitant]
  5. VITAMIN D [Concomitant]
     Dosage: 1000 UT, QD
  6. ANDROGEL [Concomitant]
  7. LOGESTROL [Concomitant]

REACTIONS (2)
  - Diarrhoea [Not Recovered/Not Resolved]
  - Chest discomfort [None]
